FAERS Safety Report 11736667 (Version 4)
Quarter: 2016Q3

REPORT INFORMATION
  Report Type: Spontaneous
  Country: US (occurrence: US)
  Receive Date: 20151113
  Receipt Date: 20160816
  Transmission Date: 20161109
  Serious: Yes (Other)
  Sender: FDA-Public Use
  Company Number: US-JNJFOC-20151002620

PATIENT
  Sex: Male
  Weight: 94.8 kg

DRUGS (4)
  1. PREDNISONE. [Suspect]
     Active Substance: PREDNISONE
     Indication: MULTIPLE SCLEROSIS
     Dosage: IN VARYING DOSES OF 80 MG, 30 MG
     Route: 065
     Dates: start: 2008
  2. LEVAQUIN [Suspect]
     Active Substance: LEVOFLOXACIN
     Indication: PNEUMONIA STAPHYLOCOCCAL
     Dosage: 500MG AND 750MG
     Route: 048
     Dates: start: 20121225, end: 20130104
  3. LEVAQUIN [Suspect]
     Active Substance: LEVOFLOXACIN
     Indication: PNEUMONIA
     Dosage: 500MG AND 750MG
     Route: 048
     Dates: start: 20121225, end: 20130104
  4. PREDNISONE. [Suspect]
     Active Substance: PREDNISONE
     Indication: MYELITIS TRANSVERSE
     Dosage: IN VARYING DOSES OF 80 MG, 30 MG
     Route: 065
     Dates: start: 2008

REACTIONS (2)
  - Immunosuppression [Unknown]
  - Neuropathy peripheral [Not Recovered/Not Resolved]

NARRATIVE: CASE EVENT DATE: 2012
